FAERS Safety Report 6012469-X (Version None)
Quarter: 2008Q4

REPORT INFORMATION
  Report Type: 
  Country: None (occurrence: None)
  Receive Date: 20081218
  Receipt Date: 20081210
  Transmission Date: 20090506
  Serious: Yes (Other)
  Sender: FDA-Public Use
  Company Number: DE-GENENTECH-273920

PATIENT

DRUGS (3)
  1. BEVACIZUMAB [Suspect]
     Indication: CHOROIDAL NEOVASCULARISATION
     Dosage: 1.25 MG, SINGLE
     Route: 031
  2. IODINE [Concomitant]
     Indication: PREMEDICATION
     Route: 061
  3. ANAESTHETIC MEDICATION [Concomitant]
     Indication: PREMEDICATION
     Route: 061

REACTIONS (1)
  - RETINAL PIGMENT EPITHELIAL TEAR [None]
